FAERS Safety Report 14685160 (Version 6)
Quarter: 2023Q2

REPORT INFORMATION
  Report Type: Spontaneous
  Country: DE (occurrence: DE)
  Receive Date: 20180327
  Receipt Date: 20230406
  Transmission Date: 20230721
  Serious: Yes (Other)
  Sender: FDA-Public Use
  Company Number: DE-BRISTOL-MYERS SQUIBB COMPANY-BMS-2018-027180

PATIENT
  Age: 77 Year
  Sex: Male

DRUGS (5)
  1. SPRYCEL [Suspect]
     Active Substance: DASATINIB
     Indication: Acute myeloid leukaemia
     Dosage: 70 MG, BID
  2. SPRYCEL [Suspect]
     Active Substance: DASATINIB
     Dosage: 140 MG, QD
  3. SPRYCEL [Suspect]
     Active Substance: DASATINIB
     Dosage: 100 MG, PERDAY
  4. HYDROXYUREA [Suspect]
     Active Substance: HYDROXYUREA
     Indication: Acute myeloid leukaemia
     Dosage: 500 MG, BID
  5. HYDROXYUREA [Suspect]
     Active Substance: HYDROXYUREA
     Dosage: 500 MG, TID

REACTIONS (5)
  - Upper gastrointestinal haemorrhage [Unknown]
  - Lung disorder [Unknown]
  - Thrombocytopenia [Unknown]
  - Off label use [Unknown]
  - Off label use [Unknown]
